FAERS Safety Report 21743821 (Version 1)
Quarter: 2022Q4

REPORT INFORMATION
  Report Type: Spontaneous
  Country: DE (occurrence: DE)
  Receive Date: 20221217
  Receipt Date: 20221217
  Transmission Date: 20230113
  Serious: Yes (Life-Threatening, Other)
  Sender: FDA-Public Use
  Company Number: DE-KRKA-DE2022K15647SPO

PATIENT
  Sex: Female

DRUGS (6)
  1. PROPOFOL [Suspect]
     Active Substance: PROPOFOL
     Indication: Induction of anaesthesia
     Dosage: UNK
     Route: 065
     Dates: start: 2020, end: 2020
  2. SUFENTANIL [Suspect]
     Active Substance: SUFENTANIL
     Indication: Induction of anaesthesia
     Dosage: UNK
     Route: 065
     Dates: start: 2020, end: 2020
  3. PIPAMPERONE [Suspect]
     Active Substance: PIPAMPERONE
     Indication: Depression
     Dosage: 40 MG, QD
     Route: 065
     Dates: start: 2017
  4. ROCURONIUM BROMIDE [Suspect]
     Active Substance: ROCURONIUM BROMIDE
     Indication: Induction of anaesthesia
     Dosage: UNK
     Route: 065
     Dates: start: 2020, end: 2020
  5. REMIFENTANIL [Suspect]
     Active Substance: REMIFENTANIL
     Indication: Induction of anaesthesia
     Dosage: UNK
     Route: 065
  6. CLONIDINE [Suspect]
     Active Substance: CLONIDINE
     Indication: Induction of anaesthesia
     Dosage: UNK
     Route: 065
     Dates: start: 2020, end: 2020

REACTIONS (6)
  - Respiratory arrest [Recovered/Resolved]
  - Abdominal injury [Unknown]
  - Intentional product use issue [Unknown]
  - Sleep disorder [Recovered/Resolved]
  - Night sweats [Recovered/Resolved]
  - Wrong technique in product usage process [Unknown]

NARRATIVE: CASE EVENT DATE: 20170101
